FAERS Safety Report 6927609-5 (Version None)
Quarter: 2010Q3

REPORT INFORMATION
  Report Type: 
  Country: None (occurrence: None)
  Receive Date: 20100817
  Receipt Date: 20100803
  Transmission Date: 20110219
  Serious: Yes (Hospitalization)
  Sender: FDA-Public Use
  Company Number: PHHY2010FR51756

PATIENT
  Sex: Female

DRUGS (1)
  1. CGP 57148B T35717+ [Suspect]
     Indication: CHRONIC MYELOID LEUKAEMIA
     Dosage: UNK

REACTIONS (2)
  - OSTEITIS [None]
  - STAPHYLOCOCCAL INFECTION [None]
